FAERS Safety Report 18112897 (Version 1)
Quarter: 2020Q3

REPORT INFORMATION
  Report Type: Spontaneous
  Country: CA (occurrence: CA)
  Receive Date: 20200805
  Receipt Date: 20200805
  Transmission Date: 20201103
  Serious: Yes (Life-Threatening, Hospitalization, Other)
  Sender: FDA-Public Use
  Company Number: CA-ACCORD-193839

PATIENT
  Age: 44 Year
  Sex: Male

DRUGS (7)
  1. ETANERCEPT [Suspect]
     Active Substance: ETANERCEPT
     Indication: IMMUNOSUPPRESSION
  2. KINERET [Suspect]
     Active Substance: ANAKINRA
     Indication: IMMUNOSUPPRESSANT DRUG THERAPY
     Dosage: 100 MG PER SYRINGE SINGLE?USE, PRESERVATIVE?FREE PREFILLED SYRINGES, SOLUTION SUBCUTANEOUS
  3. SIROLIMUS. [Suspect]
     Active Substance: SIROLIMUS
     Indication: IMMUNOSUPPRESSION
     Dosage: NOT SPECIFIED
  4. ALEMTUZUMAB [Suspect]
     Active Substance: ALEMTUZUMAB
     Indication: IMMUNOSUPPRESSANT DRUG THERAPY
     Dosage: SOLUTION INTRAVENOUS
     Route: 041
  5. TACROLIMUS. [Suspect]
     Active Substance: TACROLIMUS
     Indication: IMMUNOSUPPRESSANT DRUG THERAPY
  6. RAPAMUNE [Suspect]
     Active Substance: SIROLIMUS
     Indication: PRODUCT USED FOR UNKNOWN INDICATION
     Dosage: NOT SPECIFIED
  7. MYCOPHENOLIC ACID. [Suspect]
     Active Substance: MYCOPHENOLIC ACID
     Indication: IMMUNOSUPPRESSANT DRUG THERAPY
     Dosage: 1 EVERY 12 HOURS, NOT SPECIFIED
     Route: 041

REACTIONS (18)
  - Febrile neutropenia [Recovered/Resolved]
  - Sepsis [Recovered/Resolved]
  - Diarrhoea haemorrhagic [Recovered/Resolved]
  - Normocytic anaemia [Recovered/Resolved]
  - Post transplant lymphoproliferative disorder [Recovered/Resolved]
  - Propionibacterium infection [Recovered/Resolved]
  - Varicella [Recovered/Resolved]
  - Weight decreased [Recovered/Resolved]
  - Abdominal pain [Recovered/Resolved]
  - Central nervous system lymphoma [Recovered/Resolved]
  - Diffuse large B-cell lymphoma [Recovered/Resolved]
  - Enteritis [Recovered/Resolved]
  - Meningitis viral [Recovered/Resolved]
  - Acute kidney injury [Recovered/Resolved]
  - Gait disturbance [Recovered/Resolved]
  - Nystagmus [Recovered/Resolved]
  - Transplant failure [Unknown]
  - Vertigo [Recovered/Resolved]
